FAERS Safety Report 7134623-6 (Version None)
Quarter: 2010Q4

REPORT INFORMATION
  Report Type: 
  Country: None (occurrence: None)
  Receive Date: 20101203
  Receipt Date: 20101124
  Transmission Date: 20110411
  Serious: Yes (Other)
  Sender: FDA-Public Use
  Company Number: PHHY2010JP80437

PATIENT
  Age: 42 Year
  Sex: Female

DRUGS (2)
  1. CYCLOSPORINE [Suspect]
     Indication: RENAL TRANSPLANT
  2. AZATHIOPRINE [Concomitant]
     Indication: RENAL TRANSPLANT

REACTIONS (1)
  - ASTHMA [None]
